FAERS Safety Report 17730560 (Version 1)
Quarter: 2020Q2

REPORT INFORMATION
  Report Type: Spontaneous
  Country: CA (occurrence: CA)
  Receive Date: 20200430
  Receipt Date: 20200430
  Transmission Date: 20200714
  Serious: Yes (Other)
  Sender: FDA-Public Use
  Company Number: NVSC2020CA116335

PATIENT
  Age: 49 Year
  Sex: Female

DRUGS (1)
  1. TRIAMCINOLONE ACETONIDE. [Suspect]
     Active Substance: TRIAMCINOLONE ACETONIDE
     Indication: RETINOPATHY PROLIFERATIVE
     Dosage: UNK
     Route: 031

REACTIONS (2)
  - Retinopathy proliferative [Recovering/Resolving]
  - Product use in unapproved indication [Unknown]
